FAERS Safety Report 8420101-0 (Version None)
Quarter: 2012Q2

REPORT INFORMATION
  Report Type: 
  Country: None (occurrence: None)
  Receive Date: 20120607
  Receipt Date: 20120530
  Transmission Date: 20120825
  Serious: Yes (Other)
  Sender: FDA-Public Use
  Company Number: US-ABBOTT-12P-163-0908759-00

PATIENT
  Sex: Female
  Weight: 63.56 kg

DRUGS (4)
  1. LUPRON DEPOT [Suspect]
     Indication: MENSTRUATION IRREGULAR
  2. LUPRON DEPOT [Suspect]
     Indication: UTERINE LEIOMYOMA
     Dates: start: 20110701, end: 20110929
  3. LUPRON DEPOT [Suspect]
     Indication: MENSTRUATION IRREGULAR
     Dates: start: 20110601, end: 20110701
  4. LUPRON DEPOT [Suspect]
     Indication: UTERINE LEIOMYOMA
     Dates: start: 20030101

REACTIONS (3)
  - MENSTRUAL DISORDER [None]
  - OVARIAN DISORDER [None]
  - UTERINE FISTULA [None]
